FAERS Safety Report 12480564 (Version 1)
Quarter: 2016Q2

REPORT INFORMATION
  Report Type: Spontaneous
  Country: FR (occurrence: FR)
  Receive Date: 20160620
  Receipt Date: 20160620
  Transmission Date: 20160815
  Serious: Yes (Other)
  Sender: FDA-Public Use
  Company Number: FR-GLAXOSMITHKLINE-FR2016GSK084931

PATIENT
  Age: 64 Year
  Sex: Female

DRUGS (4)
  1. VOLTARENE [Suspect]
     Active Substance: DICLOFENAC SODIUM
     Dosage: 75 MG, QD
     Route: 048
     Dates: start: 20160603, end: 20160603
  2. ARNIKA [Concomitant]
     Indication: PRODUCT USED FOR UNKNOWN INDICATION
     Dosage: UNK
  3. RHUS TOX [Concomitant]
     Indication: PRODUCT USED FOR UNKNOWN INDICATION
     Dosage: UNK
  4. VOLTARENE [Suspect]
     Active Substance: DICLOFENAC SODIUM
     Indication: PAIN
     Dosage: 75 MG, QD
     Route: 048
     Dates: start: 20160602

REACTIONS (4)
  - Visual pathway disorder [Unknown]
  - Quadrantanopia [Not Recovered/Not Resolved]
  - Drug ineffective [Unknown]
  - Blindness [Not Recovered/Not Resolved]

NARRATIVE: CASE EVENT DATE: 20160603
